FAERS Safety Report 25092140 (Version 1)
Quarter: 2025Q1

REPORT INFORMATION
  Report Type: Report from Study
  Country: US (occurrence: US)
  Receive Date: 20250319
  Receipt Date: 20250319
  Transmission Date: 20250409
  Serious: Yes (Hospitalization)
  Sender: NOVARTIS
  Company Number: US-002147023-NVSC2024US081951

PATIENT
  Sex: Female

DRUGS (3)
  1. ILARIS [Suspect]
     Active Substance: CANAKINUMAB
     Indication: Juvenile idiopathic arthritis
     Dosage: 300 MG, Q3W (EVERY 3 WEEKS)
     Route: 058
     Dates: start: 20220111
  2. ILARIS [Suspect]
     Active Substance: CANAKINUMAB
     Indication: Monoclonal gammopathy
     Dosage: 300 MG, Q4W (EVERY 4 WEEKS)
     Route: 058
     Dates: start: 202406
  3. ILARIS [Suspect]
     Active Substance: CANAKINUMAB
     Indication: Pyrexia

REACTIONS (5)
  - Pyrexia [Unknown]
  - Condition aggravated [Unknown]
  - Illness [Unknown]
  - Product use issue [Unknown]
  - Off label use [Unknown]
